FAERS Safety Report 17063391 (Version 2)
Quarter: 2019Q4

REPORT INFORMATION
  Report Type: Report from Study
  Country: FR (occurrence: FR)
  Receive Date: 20191122
  Receipt Date: 20191125
  Transmission Date: 20200122
  Serious: Yes (Other)
  Sender: FDA-Public Use
  Company Number: NVSC2019FR042220

PATIENT
  Age: 65 Year
  Sex: Female
  Weight: 58 kg

DRUGS (24)
  1. ADOPORT [Suspect]
     Active Substance: TACROLIMUS
     Dosage: 8.5 MG
     Route: 048
     Dates: start: 20190415
  2. ADOPORT [Suspect]
     Active Substance: TACROLIMUS
     Dosage: 1.5 MG
     Route: 048
     Dates: start: 20190421
  3. ADOPORT [Suspect]
     Active Substance: TACROLIMUS
     Dosage: 2.5 MG
     Route: 048
     Dates: start: 20190423
  4. SODIUM BICARBONATE. [Concomitant]
     Active Substance: SODIUM BICARBONATE
     Indication: PRODUCT USED FOR UNKNOWN INDICATION
     Dosage: UNK
     Route: 065
     Dates: start: 20190415, end: 20190426
  5. VALGANCICLOVIR. [Concomitant]
     Active Substance: VALGANCICLOVIR
     Indication: PRODUCT USED FOR UNKNOWN INDICATION
     Dosage: UNK
     Route: 065
     Dates: start: 20190423
  6. LANSOPRAZOLE. [Concomitant]
     Active Substance: LANSOPRAZOLE
     Indication: PRODUCT USED FOR UNKNOWN INDICATION
     Dosage: UNK
     Route: 065
     Dates: start: 20190415, end: 20190425
  7. DARBEPOETIN ALFA [Concomitant]
     Active Substance: DARBEPOETIN ALFA
     Indication: PRODUCT USED FOR UNKNOWN INDICATION
     Dosage: UNK
     Route: 065
     Dates: start: 20190415
  8. ADOPORT [Suspect]
     Active Substance: TACROLIMUS
     Indication: RENAL TRANSPLANT
     Dosage: 2 MG
     Route: 048
     Dates: start: 20190415
  9. ADOPORT [Suspect]
     Active Substance: TACROLIMUS
     Dosage: 3 MG
     Route: 048
     Dates: start: 20190415, end: 20190417
  10. ADOPORT [Suspect]
     Active Substance: TACROLIMUS
     Dosage: 1.0 MG
     Route: 048
     Dates: start: 20190419
  11. ADOPORT [Suspect]
     Active Substance: TACROLIMUS
     Dosage: 5.5 MG
     Route: 048
     Dates: start: 20190425
  12. MYFORTIC [Suspect]
     Active Substance: MYCOPHENOLATE SODIUM
     Dosage: UNK
     Route: 065
     Dates: start: 20190414
  13. POTASSIUM CHLORIDE. [Concomitant]
     Active Substance: POTASSIUM CHLORIDE
     Indication: PRODUCT USED FOR UNKNOWN INDICATION
     Dosage: UNK
     Route: 065
     Dates: start: 20190423
  14. ADOPORT [Suspect]
     Active Substance: TACROLIMUS
     Dosage: 3.5 MG
     Route: 048
     Dates: start: 20190417
  15. ADOPORT [Suspect]
     Active Substance: TACROLIMUS
     Dosage: 0.5 MG
     Route: 048
     Dates: start: 20190420
  16. ADOPORT [Suspect]
     Active Substance: TACROLIMUS
     Dosage: 2.0 MG
     Route: 048
     Dates: start: 20190422
  17. ADOPORT [Suspect]
     Active Substance: TACROLIMUS
     Dosage: 2.5 MG
     Route: 048
     Dates: start: 20190418
  18. ADOPORT [Suspect]
     Active Substance: TACROLIMUS
     Dosage: 7.0 MG
     Route: 048
     Dates: start: 20190502, end: 20190513
  19. CINACALCET. [Concomitant]
     Active Substance: CINACALCET
     Indication: PRODUCT USED FOR UNKNOWN INDICATION
     Dosage: UNK
     Route: 065
     Dates: start: 20190415
  20. ADOPORT [Suspect]
     Active Substance: TACROLIMUS
     Dosage: 3.5 MG
     Route: 048
     Dates: start: 20190424
  21. ADOPORT [Suspect]
     Active Substance: TACROLIMUS
     Dosage: 6.0 MG
     Route: 048
     Dates: start: 20190426, end: 20190505
  22. MYFORTIC [Suspect]
     Active Substance: MYCOPHENOLATE SODIUM
     Indication: PRODUCT USED FOR UNKNOWN INDICATION
     Dosage: UNK
     Route: 065
  23. BACTRIM [Suspect]
     Active Substance: SULFAMETHOXAZOLE\TRIMETHOPRIM
     Indication: PRODUCT USED FOR UNKNOWN INDICATION
     Route: 065
  24. FUROSEMIDE. [Concomitant]
     Active Substance: FUROSEMIDE
     Indication: PRODUCT USED FOR UNKNOWN INDICATION
     Dosage: UNK
     Route: 065
     Dates: start: 20190417

REACTIONS (7)
  - Anaemia [Recovering/Resolving]
  - Haemorrhoids [Recovered/Resolved]
  - Eyelid oedema [Recovered/Resolved]
  - Hypertension [Recovering/Resolving]
  - Leukopenia [Recovered/Resolved]
  - Hypokalaemia [Recovered/Resolved]
  - Dysuria [Recovered/Resolved]

NARRATIVE: CASE EVENT DATE: 20190415
